FAERS Safety Report 4874414-X (Version None)
Quarter: 2006Q1

REPORT INFORMATION
  Report Type: 
  Country: None (occurrence: None)
  Receive Date: 20060104
  Receipt Date: 20060104
  Transmission Date: 20060701
  Serious: Yes (Other)
  Sender: FDA-Public Use
  Company Number: None

PATIENT
  Sex: Female
  Weight: 68.0396 kg

DRUGS (1)
  1. NORDETTE-21 [Suspect]

REACTIONS (3)
  - GASTROINTESTINAL DISORDER [None]
  - NAUSEA [None]
  - VOMITING [None]
